FAERS Safety Report 20998067 (Version 1)
Quarter: 2022Q2

REPORT INFORMATION
  Report Type: Report from Study
  Country: DE (occurrence: DE)
  Receive Date: 20220623
  Receipt Date: 20220623
  Transmission Date: 20220720
  Serious: Yes (Other)
  Sender: FDA-Public Use
  Company Number: DE-MYLANLABS-2022M1046653

PATIENT
  Sex: Female

DRUGS (1)
  1. HULIO [Suspect]
     Active Substance: ADALIMUMAB-FKJP
     Indication: Product used for unknown indication
     Dosage: UNK
     Route: 065

REACTIONS (3)
  - Abortion spontaneous [Recovered/Resolved]
  - Exposure via partner [Recovered/Resolved]
  - Paternal exposure during pregnancy [Recovered/Resolved]

NARRATIVE: CASE EVENT DATE: 20210501
